FAERS Safety Report 7635696-4 (Version None)
Quarter: 2011Q3

REPORT INFORMATION
  Report Type: 
  Country: None (occurrence: None)
  Receive Date: 20110726
  Receipt Date: 20110722
  Transmission Date: 20111222
  Serious: Yes (Other)
  Sender: FDA-Public Use
  Company Number: GB-TEVA-291694ISR

PATIENT
  Age: 14 Year
  Sex: Female

DRUGS (1)
  1. PREDNISOLONE [Suspect]
     Indication: DRUG HYPERSENSITIVITY
     Route: 002
     Dates: start: 20110714, end: 20110714

REACTIONS (4)
  - PARAESTHESIA ORAL [None]
  - HYPERSENSITIVITY [None]
  - ANGIOEDEMA [None]
  - SWOLLEN TONGUE [None]
